FAERS Safety Report 21646795 (Version 1)
Quarter: 2022Q4

REPORT INFORMATION
  Report Type: Spontaneous
  Country: ES (occurrence: ES)
  Receive Date: 20221127
  Receipt Date: 20221127
  Transmission Date: 20230113
  Serious: Yes (Other)
  Sender: FDA-Public Use
  Company Number: None

PATIENT
  Age: 82 Year
  Sex: Female

DRUGS (3)
  1. CARVEDILOL [Interacting]
     Active Substance: CARVEDILOL
     Indication: Hypertension
     Dosage: CARVEDILOL (2431A), UNIT DOSE: 25 MG , FREQUENCY TIME : 1 DAY, DURATION : 387 DAYS
     Dates: start: 20200909, end: 20210930
  2. METFORMIN [Interacting]
     Active Substance: METFORMIN HYDROCHLORIDE
     Indication: Diabetes mellitus
     Dosage: METFORMIN (1359A), UNIT DOSE: 500 MG , FREQUENCY TIME : 8 HOURS, DURATION : 387 DAYS
     Dates: start: 20200909, end: 20210930
  3. INSULIN GLARGINE [Interacting]
     Active Substance: INSULIN GLARGINE
     Indication: Diabetes mellitus
     Dosage: INSULIN GLARGINE (1165A), DURATION : 387 DAYS
     Dates: start: 20200909, end: 20210930

REACTIONS (3)
  - Lactic acidosis [Recovered/Resolved]
  - Hypoglycaemia [Unknown]
  - Drug interaction [Unknown]

NARRATIVE: CASE EVENT DATE: 20210907
